FAERS Safety Report 9235701 (Version 1)
Quarter: 2013Q2

REPORT INFORMATION
  Report Type: Spontaneous
  Country: GB (occurrence: GB)
  Receive Date: 20130417
  Receipt Date: 20130417
  Transmission Date: 20140414
  Serious: Yes (Other)
  Sender: FDA-Public Use
  Company Number: GB-JNJFOC-20130407220

PATIENT
  Age: 59 Year
  Sex: Male

DRUGS (6)
  1. LOPERAMIDE [Suspect]
     Indication: PRODUCT USED FOR UNKNOWN INDICATION
     Route: 065
  2. IBUPROFEN [Suspect]
     Indication: PRODUCT USED FOR UNKNOWN INDICATION
     Route: 065
  3. TAMSULOSIN [Suspect]
     Indication: PROSTATE CANCER
     Route: 065
  4. LUTEINIZING HORMONE-RELEASING HORMONE [Suspect]
     Indication: PROSTATE CANCER
     Route: 065
  5. BICALUTAMIDE [Suspect]
     Indication: PROSTATE CANCER
     Route: 065
  6. RADIOTHERAPY [Suspect]
     Indication: PROSTATE CANCER
     Route: 065

REACTIONS (1)
  - Acute febrile neutrophilic dermatosis [Recovered/Resolved]
